FAERS Safety Report 14241896 (Version 2)
Quarter: 2017Q4

REPORT INFORMATION
  Report Type: Spontaneous
  Country: US (occurrence: US)
  Receive Date: 20171201
  Receipt Date: 20171215
  Transmission Date: 20180321
  Serious: Yes (Hospitalization)
  Sender: FDA-Public Use
  Company Number: US-CONCORDIA PHARMACEUTICALS INC.-GSH201711-006545

PATIENT
  Age: 59 Year
  Sex: Female

DRUGS (2)
  1. PILOCARPINE. [Concomitant]
     Active Substance: PILOCARPINE
     Indication: SJOGREN^S SYNDROME
  2. HYDROXYCHLOROQUINE [Suspect]
     Active Substance: HYDROXYCHLOROQUINE
     Indication: SJOGREN^S SYNDROME
     Route: 065

REACTIONS (5)
  - Supraventricular tachycardia [Unknown]
  - Prothrombin time prolonged [Unknown]
  - Acute kidney injury [Unknown]
  - Vasodilatation [Unknown]
  - Drug reaction with eosinophilia and systemic symptoms [Recovered/Resolved]
